FAERS Safety Report 17423101 (Version 1)
Quarter: 2020Q1

REPORT INFORMATION
  Report Type: Spontaneous
  Country: US (occurrence: US)
  Receive Date: 20200130
  Receipt Date: 20200130
  Transmission Date: 20200409
  Serious: Yes (Hospitalization)
  Sender: FDA-Public Use
  Company Number: None

PATIENT
  Age: 71 Year
  Sex: Male

DRUGS (2)
  1. SEMAGLUTIDE (SEMAGLUTIDE 0.5MG/0.375ML INJ, SOLN, PEN, 1.5,ML) [Suspect]
     Active Substance: SEMAGLUTIDE
     Indication: DIABETES MELLITUS
  2. SEMAGLUTIDE (SEMAGLUTIDE 0.5MG/0.375ML INJ, SOLN, PEN, 1.5,ML) [Suspect]
     Active Substance: SEMAGLUTIDE
     Indication: PAIN
     Route: 058
     Dates: start: 20190827, end: 20190909

REACTIONS (5)
  - Head injury [None]
  - Pain in extremity [None]
  - Dizziness [None]
  - Limb operation [None]
  - Fall [None]

NARRATIVE: CASE EVENT DATE: 20190906
